FAERS Safety Report 22229072 (Version 1)
Quarter: 2023Q2

REPORT INFORMATION
  Report Type: Report from Study
  Country: DE (occurrence: DE)
  Receive Date: 20230419
  Receipt Date: 20230419
  Transmission Date: 20230722
  Serious: Yes (Other)
  Sender: FDA-Public Use
  Company Number: DE-MYLANLABS-2023M1041204

PATIENT
  Age: 39 Year
  Sex: Male

DRUGS (4)
  1. BACLOFEN [Suspect]
     Active Substance: BACLOFEN
     Indication: Myelopathy
     Dosage: 75 MILLIGRAM, QD (OVER 6 MONTHS)
     Route: 065
  2. NEVIRAPINE [Concomitant]
     Active Substance: NEVIRAPINE
     Indication: HIV infection CDC category C
     Dosage: UNK
     Route: 065
  3. ZIDOVUDINE [Concomitant]
     Active Substance: ZIDOVUDINE
     Indication: HIV infection CDC category C
     Dosage: UNK
     Route: 065
  4. LAMIVUDINE [Concomitant]
     Active Substance: LAMIVUDINE
     Indication: HIV infection CDC category C
     Dosage: UNK
     Route: 065

REACTIONS (1)
  - Drug ineffective [Unknown]
